FAERS Safety Report 9295221 (Version 1)
Quarter: 2013Q2

REPORT INFORMATION
  Report Type: Spontaneous
  Country: CH (occurrence: CH)
  Receive Date: 20130517
  Receipt Date: 20130517
  Transmission Date: 20140414
  Serious: Yes (Disabling)
  Sender: FDA-Public Use
  Company Number: CH-ACCORD-017617

PATIENT
  Age: 48 Year
  Sex: Male

DRUGS (1)
  1. HYDROCHLOROTHIAZIDE [Suspect]
     Indication: HYPERTENSION

REACTIONS (3)
  - Choroidal effusion [Recovered/Resolved]
  - Detachment of retinal pigment epithelium [Recovered/Resolved]
  - Retinal detachment [Recovered/Resolved]
